FAERS Safety Report 5451977-7 (Version None)
Quarter: 2007Q3

REPORT INFORMATION
  Report Type: 
  Country: None (occurrence: None)
  Receive Date: 20070912
  Receipt Date: 20070829
  Transmission Date: 20080115
  Serious: Yes (Death)
  Sender: FDA-Public Use
  Company Number: US020219

PATIENT
  Age: 60 Year
  Sex: Male

DRUGS (5)
  1. ACTIQ [Suspect]
     Indication: CANCER PAIN
     Dosage: 200 UG BUCCAL
     Route: 002
     Dates: start: 20070601
  2. TOPALGIC [Concomitant]
  3. ACETAMINOPHEN [Concomitant]
  4. DI-ANTALVIC [Concomitant]
  5. OGAST [Concomitant]

REACTIONS (3)
  - APPLICATION SITE DISCOLOURATION [None]
  - NECROSIS [None]
  - TONGUE DISORDER [None]
